FAERS Safety Report 10245203 (Version 1)
Quarter: 2014Q2

REPORT INFORMATION
  Report Type: Spontaneous
  Country: FR (occurrence: FR)
  Receive Date: 20140618
  Receipt Date: 20140618
  Transmission Date: 20141212
  Serious: Yes (Hospitalization)
  Sender: FDA-Public Use
  Company Number: FR-009507513-1406FRA007958

PATIENT
  Age: 88 Year
  Sex: Female

DRUGS (1)
  1. FOSAMAX [Suspect]
     Indication: OSTEONECROSIS
     Dosage: UNK
     Route: 048
     Dates: start: 1996, end: 2011

REACTIONS (1)
  - Osteonecrosis [Recovered/Resolved with Sequelae]
